FAERS Safety Report 21762184 (Version 1)
Quarter: 2022Q4

REPORT INFORMATION
  Report Type: Spontaneous
  Country: IT (occurrence: None)
  Receive Date: 20221221
  Receipt Date: 20221221
  Transmission Date: 20230112
  Serious: Yes (Hospitalization)
  Sender: FDA-Public Use
  Company Number: 2022A404672

PATIENT
  Age: 82 Year
  Sex: Male
  Weight: 72 kg

DRUGS (17)
  1. SEROQUEL [Suspect]
     Active Substance: QUETIAPINE FUMARATE
     Indication: Fear
     Dosage: SEROQUEL 25 MG 1/2 C ORE 8
     Route: 048
     Dates: start: 20220301, end: 20220727
  2. SEROQUEL [Suspect]
     Active Substance: QUETIAPINE FUMARATE
     Indication: Psychomotor hyperactivity
     Dosage: SEROQUEL 25 MG 1/2 C ORE 8
     Route: 048
     Dates: start: 20220301, end: 20220727
  3. SEROQUEL [Suspect]
     Active Substance: QUETIAPINE FUMARATE
     Indication: Irregular sleep wake rhythm disorder
     Dosage: SEROQUEL 25 MG 1/2 C ORE 8
     Route: 048
     Dates: start: 20220301, end: 20220727
  4. AVODART [Concomitant]
     Active Substance: DUTASTERIDE
     Dosage: 0.5 MG 8 HOURS
  5. PLAVIX [Concomitant]
     Active Substance: CLOPIDOGREL BISULFATE
     Dosage: 75 MG 8 HOURS
  6. EZETIMIBE\SIMVASTATIN [Concomitant]
     Active Substance: EZETIMIBE\SIMVASTATIN
  7. LANSOPRAZOLE [Concomitant]
     Active Substance: LANSOPRAZOLE
  8. PRAMIPEXOLE [Concomitant]
     Active Substance: PRAMIPEXOLE
     Dosage: 0.18 MG 20 HOURS
  9. DEURSIL [Concomitant]
     Active Substance: URSODIOL
     Dosage: 300 MG 1 CP 12 HOURS + 1 CP 7 PM
  10. AMIODARONE [Concomitant]
     Active Substance: AMIODARONE
     Dosage: 200 MG 8 HOURS
  11. RISPERDAL [Concomitant]
     Active Substance: RISPERIDONE
     Dosage: RISPERDAL 1 MG TABLET: 1/2 TABLET /DAY
     Dates: start: 20220728, end: 20220802
  12. ASPIRIN [Concomitant]
     Active Substance: ASPIRIN
     Dosage: 1 TABLET 12 OCLOCK
  13. KAYEXALATE [Concomitant]
     Active Substance: SODIUM POLYSTYRENE SULFONATE
     Dosage: 1 TABLET 12 OCLOCK
  14. LASIX [Concomitant]
     Active Substance: FUROSEMIDE
     Dosage: 500 MG 1/4 CUP 8 HOURS EXCEPT DIALYSIS DAYS
  15. LERCANIDIPINE HYDROCHLORIDE [Concomitant]
     Active Substance: LERCANIDIPINE HYDROCHLORIDE
     Dosage: 1 CP AT 20
  16. RIFAXIMIN [Concomitant]
     Active Substance: RIFAXIMIN
     Dosage: 200 MG 8 HOURS + 200 MG 20 HOURS ONE WEEK A MONTH
  17. SILODOSIN [Concomitant]
     Active Substance: SILODOSIN
     Dosage: 8 MG 8 HOURS

REACTIONS (6)
  - Catatonia [Recovering/Resolving]
  - Depressed level of consciousness [Recovering/Resolving]
  - Suck-swallow breathing coordination disturbance [Recovering/Resolving]
  - Dysphagia [Recovering/Resolving]
  - Hypersomnia [Recovering/Resolving]
  - Off label use [Recovering/Resolving]

NARRATIVE: CASE EVENT DATE: 20220727
